FAERS Safety Report 6444897-2 (Version None)
Quarter: 2009Q4

REPORT INFORMATION
  Report Type: 
  Country: None (occurrence: None)
  Receive Date: 20091117
  Receipt Date: 20091117
  Transmission Date: 20100525
  Serious: No
  Sender: FDA-Public Use
  Company Number: None

PATIENT
  Sex: Female
  Weight: 65.7716 kg

DRUGS (1)
  1. NORTREL 7/7/7 [Suspect]
     Indication: CONTRACEPTION
     Dosage: ONE DAILY ORAL
     Route: 048
     Dates: start: 20041105, end: 20041201

REACTIONS (2)
  - PRODUCT SUBSTITUTION ISSUE [None]
  - RASH [None]
